FAERS Safety Report 8820223 (Version 2)
Quarter: 2014Q1

REPORT INFORMATION
  Report Type: Spontaneous
  Country: US (occurrence: US)
  Receive Date: 20121002
  Receipt Date: 20140325
  Transmission Date: 20141002
  Serious: Yes (Other)
  Sender: FDA-Public Use
  Company Number: US-BIOGENIDEC-2012BI040281

PATIENT
  Age: 47 Year
  Sex: Male

DRUGS (1)
  1. TYSABRI [Suspect]
     Indication: MULTIPLE SCLEROSIS
     Route: 042
     Dates: start: 20100512, end: 20131029

REACTIONS (4)
  - Pyrexia [Recovered/Resolved]
  - Infection [Recovered/Resolved]
  - Dyskinesia [Not Recovered/Not Resolved]
  - Asthenia [Unknown]
